FAERS Safety Report 8187589-4 (Version None)
Quarter: 2012Q1

REPORT INFORMATION
  Report Type: 
  Country: None (occurrence: None)
  Receive Date: 20120306
  Receipt Date: 20120222
  Transmission Date: 20120608
  Serious: Yes (Hospitalization, Other)
  Sender: FDA-Public Use
  Company Number: FR-ELI_LILLY_AND_COMPANY-FR201202006162

PATIENT
  Sex: Female

DRUGS (6)
  1. ZYPREXA [Suspect]
     Indication: DISSOCIATIVE DISORDER
     Dosage: 5 MG, QD
     Route: 048
     Dates: start: 20110401, end: 20111201
  2. ZYPREXA [Suspect]
     Dosage: 7.5 MG, QD
     Route: 048
     Dates: start: 20111201
  3. TERALHITE [Concomitant]
     Dosage: 800 MG, QD
     Route: 065
  4. XANAX [Concomitant]
     Dosage: 0.5 MG, QD
     Dates: start: 20111205
  5. NOCTAMIDE [Concomitant]
     Dosage: 1 MG, QD
  6. PAROXETINE HYDROCHLORIDE [Concomitant]
     Indication: DEPRESSION
     Dosage: 20 MG, QD
     Route: 048
     Dates: start: 20111215

REACTIONS (7)
  - FACE OEDEMA [None]
  - DEPRESSION [None]
  - LIVER DISORDER [None]
  - ALANINE AMINOTRANSFERASE INCREASED [None]
  - OFF LABEL USE [None]
  - ASPARTATE AMINOTRANSFERASE INCREASED [None]
  - BLOOD ALKALINE PHOSPHATASE INCREASED [None]
